FAERS Safety Report 21375807 (Version 2)
Quarter: 2022Q4

REPORT INFORMATION
  Report Type: 
  Country: None (occurrence: CA)
  Receive Date: 20220926
  Receipt Date: 20221104
  Transmission Date: 20230113
  Serious: Yes (Hospitalization, Other)
  Sender: FDA-Public Use
  Company Number: None

PATIENT
  Age: 14 Year
  Sex: Female

DRUGS (1)
  1. LEVETIRACETAM [Suspect]
     Active Substance: LEVETIRACETAM

REACTIONS (4)
  - Rash erythematous [None]
  - Pruritus [Not Recovered/Not Resolved]
  - Weight decreased [Unknown]
  - Liver injury [Not Recovered/Not Resolved]
